FAERS Safety Report 9504435 (Version 6)
Quarter: 2014Q2

REPORT INFORMATION
  Report Type: Spontaneous
  Country: US (occurrence: US)
  Receive Date: 20130906
  Receipt Date: 20140401
  Transmission Date: 20141212
  Serious: Yes (Life-Threatening, Hospitalization)
  Sender: FDA-Public Use
  Company Number: US-JNJFOC-20130815903

PATIENT
  Age: 55 Year
  Sex: Female
  Weight: 95.5 kg

DRUGS (13)
  1. XARELTO [Suspect]
     Indication: DEEP VEIN THROMBOSIS
     Route: 048
     Dates: start: 20130522
  2. TOCILIZUMAB [Suspect]
     Indication: RHEUMATOID ARTHRITIS
     Route: 058
     Dates: start: 20130214, end: 20130617
  3. ALLEGRA [Concomitant]
     Route: 065
     Dates: start: 20130315
  4. OMEGA 3 FATTY ACIDS [Concomitant]
     Route: 065
     Dates: start: 20130701
  5. IBUPROFEN [Concomitant]
     Route: 065
     Dates: start: 20130320
  6. LEVOTHYROXINE [Concomitant]
     Route: 065
     Dates: start: 20130310
  7. CALCIUM 600+D [Concomitant]
     Route: 065
  8. MULTIVITAMINS [Concomitant]
     Route: 065
  9. KETOTIFEN [Concomitant]
     Route: 065
     Dates: start: 20130521
  10. LASIX [Concomitant]
     Route: 065
     Dates: start: 20130520, end: 20130521
  11. POTASSIUM CHLORIDE [Concomitant]
     Dosage: 80 (UNITS NOT PROVIDED)
     Route: 065
     Dates: start: 20130520, end: 20130521
  12. SYNTHROID [Concomitant]
     Route: 065
  13. NYQUIL [Concomitant]
     Route: 065

REACTIONS (8)
  - Endometrial stromal sarcoma [Not Recovered/Not Resolved]
  - Abdominal compartment syndrome [Recovered/Resolved]
  - Deep vein thrombosis [Recovered/Resolved]
  - Hydronephrosis [Unknown]
  - Nephrolithiasis [Unknown]
  - Haematuria [Recovering/Resolving]
  - Urinary tract infection [Unknown]
  - Cardiac operation [Unknown]
